FAERS Safety Report 5349509-7 (Version None)
Quarter: 2007Q2

REPORT INFORMATION
  Report Type: 
  Country: None (occurrence: None)
  Receive Date: 20070504
  Receipt Date: 20061011
  Transmission Date: 20071010
  Serious: Yes (Other)
  Sender: FDA-Public Use
  Company Number: PHEH2006US12902

PATIENT
  Age: 60 Year
  Sex: Female

DRUGS (1)
  1. DIOVAN HCT [Suspect]
     Dosage: 80 MG VAL/12.5 MG HCT, QD, ORAL
     Route: 048

REACTIONS (2)
  - ANGIOEDEMA [None]
  - LIP SWELLING [None]
